FAERS Safety Report 22600503 (Version 1)
Quarter: 2023Q2

REPORT INFORMATION
  Report Type: Spontaneous
  Country: US (occurrence: US)
  Receive Date: 20230614
  Receipt Date: 20230614
  Transmission Date: 20230722
  Serious: No
  Sender: FDA-Public Use
  Company Number: US-GLAXOSMITHKLINE-USCH2023028367

PATIENT

DRUGS (6)
  1. ADVIL [Suspect]
     Active Substance: IBUPROFEN
     Indication: Multiple allergies
     Dosage: UNK
  2. ADVIL [Suspect]
     Active Substance: IBUPROFEN
     Indication: Influenza
  3. ADVIL [Suspect]
     Active Substance: IBUPROFEN
     Indication: Pyrexia
  4. ADVIL [Suspect]
     Active Substance: IBUPROFEN
     Indication: Pain
  5. ADVIL [Suspect]
     Active Substance: IBUPROFEN
     Indication: Chills
  6. ADVIL [Suspect]
     Active Substance: IBUPROFEN
     Indication: Nasopharyngitis

REACTIONS (2)
  - Product use in unapproved indication [Unknown]
  - Drug effective for unapproved indication [Unknown]
